FAERS Safety Report 4917204-1 (Version None)
Quarter: 2006Q1

REPORT INFORMATION
  Report Type: 
  Country: None (occurrence: None)
  Receive Date: 20060215
  Receipt Date: 20060202
  Transmission Date: 20060701
  Serious: Yes (Hospitalization, Other)
  Sender: FDA-Public Use
  Company Number: 001-0902-M0100067

PATIENT
  Age: 33 Year
  Sex: Female
  Weight: 61.2356 kg

DRUGS (10)
  1. NARDIL [Suspect]
     Indication: AGORAPHOBIA
     Dosage: 30 MG (TWICE DAILY), ORAL
     Route: 048
     Dates: start: 19790101
  2. NARDIL [Suspect]
     Indication: DEPRESSION
     Dosage: 30 MG (TWICE DAILY), ORAL
     Route: 048
     Dates: start: 19790101
  3. NARDIL [Suspect]
     Indication: PAIN
     Dosage: 30 MG (TWICE DAILY), ORAL
     Route: 048
     Dates: start: 19790101
  4. NARDIL [Suspect]
     Indication: PANIC ATTACK
     Dosage: 30 MG (TWICE DAILY), ORAL
     Route: 048
     Dates: start: 19790101
  5. NARDIL [Suspect]
     Indication: SOCIAL PHOBIA
     Dosage: 30 MG (TWICE DAILY), ORAL
     Route: 048
     Dates: start: 19790101
  6. LORAZEPAM [Suspect]
     Indication: ANXIETY
     Dosage: BID, ORAL
     Route: 048
  7. THEO-DUR [Suspect]
     Indication: DYSPNOEA
  8. OTHER NUTRIENTS (OTHER NUTRIENTS) [Suspect]
     Indication: ILL-DEFINED DISORDER
  9. MILK THISTLE (SILYMARIN) [Suspect]
     Indication: ILL-DEFINED DISORDER
  10. VITAMINS (VITAMINS) [Concomitant]

REACTIONS (56)
  - AGORAPHOBIA [None]
  - ALLERGY TO ANIMAL [None]
  - AMNESIA [None]
  - ANXIETY [None]
  - ASTHMA [None]
  - BRONCHITIS CHRONIC [None]
  - BUNDLE BRANCH BLOCK RIGHT [None]
  - CELLULITIS [None]
  - CONDITION AGGRAVATED [None]
  - COUGH [None]
  - DEPRESSION [None]
  - DIARRHOEA [None]
  - DIZZINESS [None]
  - DRUG DOSE OMISSION [None]
  - DRUG INEFFECTIVE [None]
  - DRUG INTERACTION [None]
  - DRUG WITHDRAWAL SYNDROME [None]
  - DYSARTHRIA [None]
  - DYSPEPSIA [None]
  - EFFUSION [None]
  - EXTRAPYRAMIDAL DISORDER [None]
  - FEELING ABNORMAL [None]
  - FLUSHING [None]
  - FOOD CRAVING [None]
  - FOOD INTERACTION [None]
  - HEADACHE [None]
  - HEART RATE INCREASED [None]
  - HOUSE DUST ALLERGY [None]
  - HYPERSENSITIVITY [None]
  - HYPERTENSION [None]
  - HYPOMANIA [None]
  - HYPOTENSION [None]
  - INSOMNIA [None]
  - LUNG INFECTION [None]
  - MANIA [None]
  - MIDDLE INSOMNIA [None]
  - NECK PAIN [None]
  - OBSESSIVE THOUGHTS [None]
  - OBSESSIVE-COMPULSIVE DISORDER [None]
  - OBSESSIVE-COMPULSIVE PERSONALITY DISORDER [None]
  - OPERATIVE HAEMORRHAGE [None]
  - PALPITATIONS [None]
  - PANIC ATTACK [None]
  - POSTOPERATIVE INFECTION [None]
  - PROCEDURAL COMPLICATION [None]
  - SENSATION OF BLOOD FLOW [None]
  - SENSATION OF FOREIGN BODY [None]
  - SENSATION OF HEAVINESS [None]
  - STAPHYLOCOCCAL INFECTION [None]
  - SUICIDAL IDEATION [None]
  - SUTURE RUPTURE [None]
  - THROAT TIGHTNESS [None]
  - TONGUE DISORDER [None]
  - TRANSIENT ISCHAEMIC ATTACK [None]
  - VOMITING [None]
  - WEIGHT INCREASED [None]
